FAERS Safety Report 5335060-7 (Version None)
Quarter: 2007Q2

REPORT INFORMATION
  Report Type: 
  Country: None (occurrence: None)
  Receive Date: 20070525
  Receipt Date: 20070517
  Transmission Date: 20071010
  Serious: Yes (Death)
  Sender: FDA-Public Use
  Company Number: JP-GENENTECH-239069

PATIENT

DRUGS (2)
  1. RITUXIMAB [Suspect]
     Indication: SYSTEMIC LUPUS ERYTHEMATOSUS
     Dosage: 1000 MG/BODY 2 TIMES
     Dates: start: 20050808, end: 20050816
  2. RITUXIMAB [Suspect]
     Dosage: 1000 MG/BODY 2 TIMES
     Dates: start: 20060707, end: 20060719

REACTIONS (1)
  - PULMONARY EMBOLISM [None]
